FAERS Safety Report 19077993 (Version 1)
Quarter: 2021Q1

REPORT INFORMATION
  Report Type: Spontaneous
  Country: US (occurrence: US)
  Receive Date: 20210331
  Receipt Date: 20210331
  Transmission Date: 20210420
  Serious: No
  Sender: FDA-Public Use
  Company Number: None

PATIENT
  Age: 26 Year
  Sex: Female
  Weight: 58.5 kg

DRUGS (1)
  1. SECRET POMEGRANATE INVISIBLE SOLID [Suspect]
     Active Substance: ALUMINUM ZIRCONIUM TETRACHLOROHYDREX GLY
     Indication: HYPERHIDROSIS
     Route: 061
     Dates: start: 20210316, end: 20210331

REACTIONS (2)
  - Chemical burn [None]
  - Burning sensation [None]

NARRATIVE: CASE EVENT DATE: 20210331
